FAERS Safety Report 4765183-2 (Version None)
Quarter: 2005Q3

REPORT INFORMATION
  Report Type: 
  Country: None (occurrence: None)
  Receive Date: 20050906
  Receipt Date: 20050818
  Transmission Date: 20060218
  Serious: No
  Sender: FDA-Public Use
  Company Number: USA050188552

PATIENT
  Age: 49 Year
  Sex: Male

DRUGS (4)
  1. CIALIS [Suspect]
     Indication: ERECTILE DYSFUNCTION
     Dosage: 20 MG
     Dates: start: 20050301
  2. ZYPREXA [Suspect]
     Indication: DEPRESSION
     Dosage: 5 MG,
  3. VALIUM [Concomitant]
  4. LUVOX [Concomitant]

REACTIONS (9)
  - DRUG INEFFECTIVE [None]
  - GENITAL HAEMORRHAGE [None]
  - HEADACHE [None]
  - INSOMNIA [None]
  - PAIN [None]
  - PAINFUL ERECTION [None]
  - PENILE PAIN [None]
  - PLATELET COUNT DECREASED [None]
  - WHITE BLOOD CELL COUNT DECREASED [None]
